FAERS Safety Report 19903065 (Version 2)
Quarter: 2021Q4

REPORT INFORMATION
  Report Type: Spontaneous
  Country: BR (occurrence: BR)
  Receive Date: 20211001
  Receipt Date: 20211216
  Transmission Date: 20220304
  Serious: Yes (Other)
  Sender: FDA-Public Use
  Company Number: BR-NOVOPROD-850804

PATIENT
  Age: 14 Year
  Sex: Male
  Weight: 97.1 kg

DRUGS (1)
  1. SAXENDA [Suspect]
     Active Substance: LIRAGLUTIDE
     Indication: Obesity
     Dosage: 1.8 MG, QD
     Route: 065
     Dates: start: 202101

REACTIONS (1)
  - Type 1 diabetes mellitus [Recovered/Resolved]

NARRATIVE: CASE EVENT DATE: 20210401
